FAERS Safety Report 24240328 (Version 1)
Quarter: 2024Q3

REPORT INFORMATION
  Report Type: Spontaneous
  Country: US (occurrence: US)
  Receive Date: 20240822
  Receipt Date: 20240822
  Transmission Date: 20241017
  Serious: Yes (Hospitalization)
  Sender: DOMPE FARMACEUTICI
  Company Number: US-FARMAPROD-202408-2919

PATIENT
  Sex: Female

DRUGS (17)
  1. OXERVATE [Suspect]
     Active Substance: CENEGERMIN-BKBJ
     Indication: Neurotrophic keratopathy
     Route: 047
     Dates: start: 20240724
  2. FUROSEMIDE [Concomitant]
     Active Substance: FUROSEMIDE
  3. HYDROCHLOROTHIAZIDE [Concomitant]
     Active Substance: HYDROCHLOROTHIAZIDE
  4. SINGULAIR [Concomitant]
     Active Substance: MONTELUKAST SODIUM
  5. METOPROLOL SUCCINATE [Concomitant]
     Active Substance: METOPROLOL SUCCINATE
  6. VENTOLIN [Concomitant]
     Active Substance: ALBUTEROL SULFATE
     Dosage: HYDROFLUOROALKANE, AEROSOL WITH ADAPTER
  7. PREGABALIN [Concomitant]
     Active Substance: PREGABALIN
  8. POTASSIUM CHLORIDE [Concomitant]
     Active Substance: POTASSIUM CHLORIDE
  9. ACETAMINOPHEN\OXYCODONE HYDROCHLORIDE [Concomitant]
     Active Substance: ACETAMINOPHEN\OXYCODONE HYDROCHLORIDE
  10. NITROGLYCERIN [Concomitant]
     Active Substance: NITROGLYCERIN
  11. MOXIFLOXACIN [Concomitant]
     Active Substance: MOXIFLOXACIN
  12. EZETIMIBE [Concomitant]
     Active Substance: EZETIMIBE
  13. CYCLOBENZAPRINE HYDROCHLORIDE [Concomitant]
     Active Substance: CYCLOBENZAPRINE HYDROCHLORIDE
  14. CLOPIDOGREL [Concomitant]
     Active Substance: CLOPIDOGREL BISULFATE
  15. KLONOPIN [Concomitant]
     Active Substance: CLONAZEPAM
     Dosage: 1 PRALUENT PEN, PEN INJECTOR
  16. NOVOLOG [Concomitant]
     Active Substance: INSULIN ASPART
     Dosage: 70-30 70-30/ML VIAL
  17. PRALUENT [Concomitant]
     Active Substance: ALIROCUMAB
     Dosage: PEN INJECTOR

REACTIONS (1)
  - Hospitalisation [Unknown]
